FAERS Safety Report 5919195-3 (Version None)
Quarter: 2008Q4

REPORT INFORMATION
  Report Type: 
  Country: None (occurrence: None)
  Receive Date: 20081015
  Receipt Date: 20081009
  Transmission Date: 20090506
  Serious: Yes (Other)
  Sender: FDA-Public Use
  Company Number: GB-ROCHE-591110

PATIENT
  Sex: Female
  Weight: 111.1 kg

DRUGS (3)
  1. ORLISTAT [Suspect]
     Indication: OBESITY
     Route: 048
     Dates: start: 20080705
  2. CARBIMAZOLE [Concomitant]
     Dosage: INDICATION REPORTED AS THYROID
     Route: 048
  3. AMISULPRIDE [Concomitant]
     Indication: SCHIZOPHRENIA
     Dosage: 600MG ONCE DAILY, 300MG TWICE DAILY
     Route: 048

REACTIONS (1)
  - ANGINA PECTORIS [None]
